FAERS Safety Report 7167322-5 (Version None)
Quarter: 2010Q4

REPORT INFORMATION
  Report Type: 
  Country: None (occurrence: None)
  Receive Date: 20101216
  Receipt Date: 20101214
  Transmission Date: 20110411
  Serious: Yes (Hospitalization)
  Sender: FDA-Public Use
  Company Number: IT-PFIZER INC-2010172445

PATIENT
  Age: 52 Year
  Sex: Female

DRUGS (1)
  1. HALCION [Suspect]
     Indication: ANXIETY DISORDER
     Dosage: 250 UG, 1X/DAY
     Route: 048
     Dates: start: 20101001, end: 20101022

REACTIONS (1)
  - ACUTE PULMONARY OEDEMA [None]
